FAERS Safety Report 7780661-X (Version None)
Quarter: 2011Q3

REPORT INFORMATION
  Report Type: 
  Country: None (occurrence: None)
  Receive Date: 20110927
  Receipt Date: 20110223
  Transmission Date: 20111222
  Serious: No
  Sender: FDA-Public Use
  Company Number: US-BRISTOL-MYERS SQUIBB COMPANY-15565682

PATIENT
  Sex: Female

DRUGS (2)
  1. AVAPRO [Suspect]
     Indication: BLOOD PRESSURE
     Dosage: 1 DF = 2 PILLS
  2. HYDROCHLOROTHIAZIDE [Suspect]
     Indication: BLOOD PRESSURE

REACTIONS (2)
  - MALAISE [None]
  - BLOOD PRESSURE INCREASED [None]
